FAERS Safety Report 7006515-4 (Version None)
Quarter: 2010Q3

REPORT INFORMATION
  Report Type: 
  Country: None (occurrence: None)
  Receive Date: 20100921
  Receipt Date: 20100921
  Transmission Date: 20110219
  Serious: Yes (Hospitalization)
  Sender: FDA-Public Use
  Company Number: None

PATIENT
  Age: 54 Year
  Sex: Female
  Weight: 116 kg

DRUGS (16)
  1. IXABEPILONE [Suspect]
     Indication: BREAST CANCER
     Dosage: 32MG/M2 IV EVERY 3 WKS
     Route: 042
     Dates: start: 20100914
  2. VORINOSTAT [Suspect]
     Indication: BREAST CANCER
     Dosage: 300MG PO DAILYX14 D/CYCL
     Route: 048
     Dates: start: 20100913
  3. ALFALFA SUPP [Concomitant]
  4. ATENOLOL [Concomitant]
  5. BENAZEPRIL HYDROCHLORIDE [Concomitant]
  6. FERROUS SULFATE TAB [Concomitant]
  7. LASIX [Concomitant]
  8. KLOR-CON [Concomitant]
  9. LANTUS [Concomitant]
  10. SYNTHROID [Concomitant]
  11. PROBIOTICS [Concomitant]
  12. ZOCOR [Concomitant]
  13. ULTRAM [Concomitant]
  14. VIT B COMP [Concomitant]
  15. M.V.I. [Concomitant]
  16. ZANTAC [Concomitant]

REACTIONS (4)
  - CELLULITIS [None]
  - ERYTHEMA [None]
  - OEDEMA PERIPHERAL [None]
  - PAIN [None]
